FAERS Safety Report 4599279-5 (Version None)
Quarter: 2005Q1

REPORT INFORMATION
  Report Type: 
  Country: None (occurrence: None)
  Receive Date: 20050302
  Receipt Date: 20050224
  Transmission Date: 20050727
  Serious: Yes (Hospitalization, Other)
  Sender: FDA-Public Use
  Company Number: GBWYE373226JAN05

PATIENT
  Age: 18 Year
  Sex: Female

DRUGS (2)
  1. EFFEXOR XR [Suspect]
     Dosage: ORAL
     Route: 048
     Dates: end: 20050101
  2. TRINORDIOL (LEVONORGESTREL/ETHINYL ESTRADIOL) [Concomitant]

REACTIONS (5)
  - BLOOD VISCOSITY INCREASED [None]
  - CHEST PAIN [None]
  - DRUG WITHDRAWAL SYNDROME [None]
  - FIBRIN D DIMER INCREASED [None]
  - LOWER RESPIRATORY TRACT INFECTION [None]
